FAERS Safety Report 7299629-5 (Version None)
Quarter: 2011Q1

REPORT INFORMATION
  Report Type: 
  Country: None (occurrence: None)
  Receive Date: 20110217
  Receipt Date: 20110213
  Transmission Date: 20110831
  Serious: Yes (Hospitalization)
  Sender: FDA-Public Use
  Company Number: US-B.I. PHARMACEUTICALS,INC./RIDGEFIELD-2011-BP-02809BP

PATIENT

DRUGS (1)
  1. PRADAXA [Suspect]
     Route: 048
     Dates: start: 20110210, end: 20110211

REACTIONS (1)
  - PERITONEAL HAEMORRHAGE [None]
